FAERS Safety Report 7513286-1 (Version None)
Quarter: 2011Q2

REPORT INFORMATION
  Report Type: 
  Country: None (occurrence: None)
  Receive Date: 20110531
  Receipt Date: 20110525
  Transmission Date: 20111010
  Serious: Yes (Life-Threatening, Hospitalization, Other)
  Sender: FDA-Public Use
  Company Number: CA-ASTRAZENECA-2011SE28617

PATIENT
  Age: 35 Year
  Sex: Female
  Weight: 67 kg

DRUGS (1)
  1. VIMOVO [Suspect]
     Indication: MUSCULOSKELETAL PAIN
     Route: 048

REACTIONS (5)
  - LIP SWELLING [None]
  - SWELLING FACE [None]
  - WEIGHT INCREASED [None]
  - BLOOD POTASSIUM INCREASED [None]
  - ABDOMINAL DISTENSION [None]
